FAERS Safety Report 21848284 (Version 1)
Quarter: 2023Q1

REPORT INFORMATION
  Report Type: Spontaneous
  Country: US (occurrence: None)
  Receive Date: 20230110
  Receipt Date: 20230110
  Transmission Date: 20230418
  Serious: Yes (Other)
  Sender: FDA-Public Use
  Company Number: None

PATIENT
  Sex: Female
  Weight: 85.95 kg

DRUGS (4)
  1. IMITREX STATDOSE [Suspect]
     Active Substance: SUMATRIPTAN SUCCINATE
     Indication: Migraine with aura
     Dosage: FREQUENCY : AS NEEDED;?
     Route: 058
     Dates: start: 20191024
  2. NORTRIPTYLINE [Concomitant]
     Active Substance: NORTRIPTYLINE
     Dates: start: 20191024
  3. MAXALT [Concomitant]
     Active Substance: RIZATRIPTAN BENZOATE
  4. EMGALITY [Concomitant]
     Active Substance: GALCANEZUMAB-GNLM

REACTIONS (1)
  - Feeling hot [None]
